FAERS Safety Report 5337312-3 (Version None)
Quarter: 2007Q2

REPORT INFORMATION
  Report Type: 
  Country: None (occurrence: None)
  Receive Date: 20070529
  Receipt Date: 20070517
  Transmission Date: 20071010
  Serious: Yes (Other)
  Sender: FDA-Public Use
  Company Number: AU-PFIZER INC-2007040585

PATIENT
  Sex: Male

DRUGS (6)
  1. LOPID [Suspect]
  2. AVAPRO [Concomitant]
  3. ALLOPURINOL [Concomitant]
  4. DIAMICRON [Concomitant]
  5. METFORMIN HCL [Concomitant]
  6. LANTUS [Concomitant]

REACTIONS (1)
  - BLOOD GLUCOSE INCREASED [None]
